FAERS Safety Report 5888306-0 (Version None)
Quarter: 2008Q3

REPORT INFORMATION
  Report Type: 
  Country: None (occurrence: None)
  Receive Date: 20080917
  Receipt Date: 20080904
  Transmission Date: 20090109
  Serious: Yes (Hospitalization)
  Sender: FDA-Public Use
  Company Number: SPV1-2008-01865

PATIENT
  Age: 27 Year
  Sex: Male
  Weight: 39 kg

DRUGS (5)
  1. ELAPRASE [Suspect]
     Indication: MUCOPOLYSACCHARIDOSIS II
     Dosage: 18 MG, 1X/WEEK, IV DRIP
     Route: 041
     Dates: start: 20070522
  2. HYDROXYZINE HCL [Concomitant]
  3. HYDROCORTISONE SODIUM SUCCINATE [Concomitant]
  4. FUROSEMIDE [Concomitant]
  5. TIZANIDINE HCL [Concomitant]

REACTIONS (7)
  - BACK PAIN [None]
  - ILL-DEFINED DISORDER [None]
  - NEURALGIA [None]
  - OROPHARYNGEAL PAIN [None]
  - PAIN [None]
  - PNEUMONIA [None]
  - WHEEZING [None]
